FAERS Safety Report 9024037 (Version 2)
Quarter: 2013Q1

REPORT INFORMATION
  Report Type: Report from Study
  Country: US (occurrence: US)
  Receive Date: 20130122
  Receipt Date: 20130123
  Transmission Date: 20140127
  Serious: Yes (Hospitalization)
  Sender: FDA-Public Use
  Company Number: US-MERCK-1301USA005464

PATIENT
  Age: 53 None
  Sex: Male
  Weight: 89.8 kg

DRUGS (6)
  1. BOCEPREVIR [Suspect]
     Indication: HIV INFECTION
     Dosage: 800 MG, TID
     Route: 048
     Dates: start: 20121212
  2. BOCEPREVIR [Suspect]
     Indication: HEPATITIS C
  3. RIBAVIRIN [Suspect]
     Indication: HIV INFECTION
     Dosage: 600 MG, BID
     Route: 048
     Dates: start: 20121119
  4. RIBAVIRIN [Suspect]
     Indication: HEPATITIS C
  5. PEGINTERFERON ALFA-2B [Suspect]
     Indication: HIV INFECTION
     Dosage: 150 MICROGRAM, QW
     Route: 058
     Dates: start: 20121119
  6. PEGINTERFERON ALFA-2B [Suspect]
     Indication: HEPATITIS C

REACTIONS (1)
  - Myalgia [Recovered/Resolved]
